FAERS Safety Report 11138059 (Version 1)
Quarter: 2015Q2

REPORT INFORMATION
  Report Type: Report from Study
  Country: ZA (occurrence: ZA)
  Receive Date: 20150526
  Receipt Date: 20150526
  Transmission Date: 20150821
  Serious: Yes (Hospitalization)
  Sender: FDA-Public Use
  Company Number: PHHY2015ZA058834

PATIENT
  Sex: Female

DRUGS (3)
  1. ACLASTA [Suspect]
     Active Substance: ZOLEDRONIC ACID
     Dosage: 1 DF (5MG/100ML), UNK
     Route: 042
     Dates: start: 2014
  2. ACLASTA [Suspect]
     Active Substance: ZOLEDRONIC ACID
     Indication: OSTEOPOROSIS
     Dosage: 1 DF (5MG/100ML), UNK
     Route: 042
     Dates: start: 2012
  3. ACLASTA [Suspect]
     Active Substance: ZOLEDRONIC ACID
     Dosage: 1 DF (5MG/100ML), UNK
     Route: 042
     Dates: start: 2013

REACTIONS (3)
  - Femur fracture [Unknown]
  - Fall [Unknown]
  - Drug ineffective [Unknown]
